FAERS Safety Report 8046901-7 (Version None)
Quarter: 2012Q1

REPORT INFORMATION
  Report Type: 
  Country: None (occurrence: None)
  Receive Date: 20120116
  Receipt Date: 20120104
  Transmission Date: 20120608
  Serious: Yes (Hospitalization)
  Sender: FDA-Public Use
  Company Number: US-ELI_LILLY_AND_COMPANY-US201201001611

PATIENT
  Sex: Male

DRUGS (14)
  1. FORTEO [Suspect]
     Dosage: 20 UG, QD
  2. SPIRIVA [Concomitant]
  3. FERROUS                            /00023505/ [Concomitant]
     Indication: BLOOD IRON ABNORMAL
  4. STOOL SOFTENER [Concomitant]
  5. MULTI-VITAMIN [Concomitant]
  6. FORTEO [Suspect]
     Indication: OSTEOPOROSIS
     Dosage: 20 UG, QD
     Dates: start: 20111206
  7. CALCIUM [Concomitant]
     Dosage: UNK, BID
  8. PROVENTIL                          /00139501/ [Concomitant]
     Dosage: UNK, PRN
  9. CLARITIN [Concomitant]
  10. BIAXIN [Concomitant]
     Dosage: UNK, QD
  11. VENTOLIN [Concomitant]
  12. ADVAIR DISKUS 100/50 [Concomitant]
  13. ASPIRIN [Concomitant]
     Dosage: UNK, QD
  14. VITAMIN B-12 [Concomitant]

REACTIONS (2)
  - VIRAL INFECTION [None]
  - DYSPNOEA [None]
